FAERS Safety Report 8144347 (Version 5)
Quarter: 2014Q3

REPORT INFORMATION
  Report Type: Spontaneous
  Country: GB (occurrence: GB)
  Receive Date: 20110920
  Receipt Date: 20140707
  Transmission Date: 20150326
  Serious: Yes (Life-Threatening, Hospitalization, Disabling, Other)
  Sender: FDA-Public Use
  Company Number: PHHY2011GB78781

PATIENT
  Age: 31 Year
  Sex: Female
  Weight: 63.5 kg

DRUGS (21)
  1. QUETIAPINE [Suspect]
     Active Substance: QUETIAPINE
     Indication: PSYCHOTIC DISORDER
     Dosage: 300 MG, UNK
     Dates: end: 20110506
  2. PROCYCLIDINE [Suspect]
     Active Substance: PROCYCLIDINE
     Indication: OCULOGYRIC CRISIS
     Dosage: 5 MG, TID
     Route: 048
     Dates: start: 20110503, end: 20110506
  3. LORAZEPAM. [Suspect]
     Active Substance: LORAZEPAM
     Dosage: 1 MG, UNK
     Route: 048
     Dates: start: 20110523, end: 20110627
  4. OMEPRAZOLE. [Suspect]
     Active Substance: OMEPRAZOLE
     Indication: DYSPEPSIA
     Dosage: 20 MG, QD
     Dates: start: 20110525
  5. DIAZEPAM. [Suspect]
     Active Substance: DIAZEPAM
     Dosage: 5 MG, UNK
     Dates: start: 20110725
  6. PAROXETINE [Interacting]
     Active Substance: PAROXETINE\PAROXETINE HYDROCHLORIDE
     Indication: POST-TRAUMATIC STRESS DISORDER
  7. TRAMADOL [Interacting]
     Active Substance: TRAMADOL
     Indication: ANALGESIC THERAPY
     Dosage: 15 MG, QD
     Dates: end: 20101210
  8. OMEPRAZOLE. [Suspect]
     Active Substance: OMEPRAZOLE
     Indication: GASTRIC PH DECREASED
  9. AMITRIPTYLINE [Suspect]
     Active Substance: AMITRIPTYLINE
     Indication: NEURALGIA
     Dosage: 25 MG, QD (AT NIGHT)
     Dates: start: 20110810
  10. PROCYCLIDINE [Suspect]
     Active Substance: PROCYCLIDINE
     Indication: EXTRAPYRAMIDAL DISORDER
     Dosage: UNK UKN, UNK
     Dates: start: 1995, end: 1996
  11. CLONAZEPAM. [Interacting]
     Active Substance: CLONAZEPAM
     Indication: SEDATION
     Dosage: UNK
     Route: 048
     Dates: end: 20110410
  12. LORAZEPAM. [Suspect]
     Active Substance: LORAZEPAM
     Indication: SEDATION
     Dosage: 1 MG, UNK
     Dates: end: 20110410
  13. CODEINE PHOSPHATE [Suspect]
     Active Substance: CODEINE PHOSPHATE
     Dosage: UNK
     Route: 048
     Dates: start: 20110615, end: 20110723
  14. DIAZEPAM. [Suspect]
     Active Substance: DIAZEPAM
     Indication: MUSCLE SPASMS
     Dosage: UNK UKN, UNK
  15. CODEINE PHOSPHATE [Suspect]
     Active Substance: CODEINE PHOSPHATE
     Dosage: UNK
     Dates: end: 2008
  16. AMITRIPTYLINE [Suspect]
     Active Substance: AMITRIPTYLINE
     Indication: MUSCLE SPASMS
     Dosage: UNK UKN, UNK
     Dates: start: 20110506
  17. DOMPERIDONE [Interacting]
     Active Substance: DOMPERIDONE
     Dosage: UNK UKN, UNK
  18. MIRTAZAPINE. [Suspect]
     Active Substance: MIRTAZAPINE
     Indication: DEPRESSION
     Dosage: 30 MG, UNK
     Dates: end: 20101210
  19. CODEINE PHOSPHATE [Suspect]
     Active Substance: CODEINE PHOSPHATE
     Indication: ANALGESIC THERAPY
     Dosage: UNK UKN, UNK
     Dates: end: 2002
  20. SEROXAT [Suspect]
     Active Substance: PAROXETINE HYDROCHLORIDE
     Indication: DEPRESSION
     Dosage: 20 MG, TID
     Route: 048
     Dates: start: 1999, end: 201105
  21. PAROXETINE [Suspect]
     Active Substance: PAROXETINE\PAROXETINE HYDROCHLORIDE
     Indication: DEPRESSION
     Dosage: 40 MG, UNK
     Route: 048
     Dates: end: 20110706

REACTIONS (100)
  - Pupillary disorder [Unknown]
  - Incoherent [Unknown]
  - Suicidal ideation [Not Recovered/Not Resolved]
  - Swollen tongue [Unknown]
  - Musculoskeletal stiffness [Unknown]
  - Swelling face [Unknown]
  - Premature labour [Unknown]
  - Toxicity to various agents [Unknown]
  - Convulsion [Unknown]
  - Hypotonia [Unknown]
  - Anxiety [Unknown]
  - Decreased appetite [Unknown]
  - Mania [Unknown]
  - Dyspnoea [Unknown]
  - Gait disturbance [Unknown]
  - Muscle rigidity [Unknown]
  - Urinary retention [Unknown]
  - Cyanosis [Unknown]
  - Mydriasis [Unknown]
  - Parosmia [Unknown]
  - Restless legs syndrome [Unknown]
  - Vomiting [Unknown]
  - Dizziness [Unknown]
  - Sleep disorder [Unknown]
  - Emotional disorder [Unknown]
  - Hypersomnia [Unknown]
  - Speech disorder [Unknown]
  - Restlessness [Unknown]
  - Abasia [Unknown]
  - Drooling [Unknown]
  - Eye pain [Unknown]
  - Disturbance in attention [Unknown]
  - Skin discolouration [Unknown]
  - Paralysis [Unknown]
  - Nightmare [Unknown]
  - Asthenia [Unknown]
  - Tachycardia [Unknown]
  - Muscle spasms [Unknown]
  - Feeling of despair [Unknown]
  - Feeling of body temperature change [Unknown]
  - Heart rate increased [Unknown]
  - Contusion [Unknown]
  - Epilepsy [Unknown]
  - VIIth nerve paralysis [Unknown]
  - H1N1 influenza [Unknown]
  - Arthralgia [Unknown]
  - Dystonia [Unknown]
  - Sensory disturbance [Unknown]
  - Pruritus [Unknown]
  - Feeling jittery [Unknown]
  - Road traffic accident [Unknown]
  - Cogwheel rigidity [Unknown]
  - Pallor [Unknown]
  - Pain [Unknown]
  - Aphasia [Recovered/Resolved]
  - Dissociation [Unknown]
  - Muscle disorder [Unknown]
  - Derealisation [Unknown]
  - Blood sodium decreased [Unknown]
  - Fatigue [Unknown]
  - Confusional state [Unknown]
  - Depression [Unknown]
  - Muscular weakness [Unknown]
  - Balance disorder [Unknown]
  - Neck pain [Unknown]
  - Schizophrenia [Unknown]
  - Hyperhidrosis [Unknown]
  - Sensory loss [Unknown]
  - Tinnitus [Unknown]
  - Dyskinesia [Unknown]
  - Tremor [Not Recovered/Not Resolved]
  - Neuroleptic malignant syndrome [Unknown]
  - Hallucination, auditory [Unknown]
  - Headache [Unknown]
  - Gastric pH decreased [Unknown]
  - Diarrhoea [Unknown]
  - Myalgia [Unknown]
  - Hypoaesthesia oral [Unknown]
  - Mood swings [Unknown]
  - Hypoaesthesia [Unknown]
  - Depersonalisation [Unknown]
  - Paraesthesia [Unknown]
  - Maternal exposure during pregnancy [Unknown]
  - Serotonin syndrome [Not Recovered/Not Resolved]
  - Hallucination [Unknown]
  - Vision blurred [Unknown]
  - Menstrual disorder [Unknown]
  - Back pain [Unknown]
  - Drug interaction [Unknown]
  - Disorientation [Unknown]
  - Dysstasia [Unknown]
  - Agitation [Unknown]
  - Incontinence [Unknown]
  - Psychotic disorder [Unknown]
  - Drug withdrawal syndrome [Unknown]
  - Visual impairment [Unknown]
  - Malaise [Not Recovered/Not Resolved]
  - Pyrexia [Unknown]
  - Feeling abnormal [Unknown]
  - Delirium [Unknown]

NARRATIVE: CASE EVENT DATE: 2003
